FAERS Safety Report 20023864 (Version 1)
Quarter: 2021Q4

REPORT INFORMATION
  Report Type: Spontaneous
  Country: ES (occurrence: ES)
  Receive Date: 20211102
  Receipt Date: 20211102
  Transmission Date: 20220303
  Serious: Yes (Other)
  Sender: FDA-Public Use
  Company Number: ES-NAPPMUNDI-GBR-2021-0089166

PATIENT
  Age: 55 Year
  Sex: Female

DRUGS (9)
  1. GABAPENTIN [Suspect]
     Active Substance: GABAPENTIN
     Indication: Neuralgia
     Dosage: 600 MILLIGRAM, Q8H
     Route: 065
     Dates: start: 201905
  2. GABAPENTIN [Suspect]
     Active Substance: GABAPENTIN
     Dosage: 900 MILLIGRAM, Q8H
     Route: 065
     Dates: start: 202003
  3. TRAMADOL [Suspect]
     Active Substance: TRAMADOL
     Indication: Neuralgia
     Dosage: 75 MILLIGRAM, BID
     Route: 065
     Dates: start: 201905
  4. TRAMADOL [Suspect]
     Active Substance: TRAMADOL
     Dosage: 200 MILLIGRAM, BID
     Route: 065
     Dates: start: 202003
  5. AMITRIPTYLINE [Suspect]
     Active Substance: AMITRIPTYLINE
     Indication: Neuralgia
     Dosage: 25 MILLIGRAM, QD
     Route: 065
     Dates: start: 201905
  6. CLONAZEPAM [Suspect]
     Active Substance: CLONAZEPAM
     Indication: Product used for unknown indication
     Dosage: 0.5 MILLIGRAM, BID
     Route: 065
  7. METHOTREXATE [Concomitant]
     Active Substance: METHOTREXATE
     Indication: Rheumatoid arthritis
     Dosage: UNK
  8. CAPSAICIN [Concomitant]
     Active Substance: CAPSAICIN
     Indication: Neuralgia
     Dosage: UNK
  9. ENALAPRIL [Concomitant]
     Active Substance: ENALAPRIL
     Indication: Hypertension
     Dosage: UNK
     Dates: start: 2013

REACTIONS (10)
  - Weight decreased [Unknown]
  - Complement factor C4 decreased [Unknown]
  - Drug ineffective [Not Recovered/Not Resolved]
  - Hypochromic anaemia [Unknown]
  - Cryoglobulinaemia [Unknown]
  - Pain [Not Recovered/Not Resolved]
  - Rheumatoid factor positive [Unknown]
  - Peroneal nerve palsy [Unknown]
  - Condition aggravated [Unknown]
  - Paresis [Unknown]

NARRATIVE: CASE EVENT DATE: 20191201
